FAERS Safety Report 21979332 (Version 3)
Quarter: 2023Q1

REPORT INFORMATION
  Report Type: Spontaneous
  Country: AU (occurrence: AU)
  Receive Date: 20230210
  Receipt Date: 20230220
  Transmission Date: 20230418
  Serious: Yes (Hospitalization, Other)
  Sender: FDA-Public Use
  Company Number: AU-PURDUE PHARMA-USA-2023-0299773

PATIENT
  Age: 72 Year
  Sex: Female

DRUGS (7)
  1. OXYCODONE HYDROCHLORIDE [Suspect]
     Active Substance: OXYCODONE HYDROCHLORIDE
     Indication: Pain in extremity
     Dosage: 20 MILLIGRAM, BID
     Route: 065
  2. OXYCODONE HYDROCHLORIDE [Suspect]
     Active Substance: OXYCODONE HYDROCHLORIDE
     Indication: Analgesic therapy
     Dosage: AS NECESSARY, PRN 5 MG 4-HOURLY UNTIL THE DAY PRIOR TO ADMISSION (IMMEDIATE RELEASE)
     Route: 065
     Dates: start: 2021, end: 2021
  3. OXYCODONE HYDROCHLORIDE [Suspect]
     Active Substance: OXYCODONE HYDROCHLORIDE
     Dosage: 20 MILLIGRAM, Q12H (TWICE DAILY 4 DAYS PRIOR), SUSTAINED RELEASE
     Route: 065
     Dates: start: 2021, end: 2021
  4. OXYCODONE HYDROCHLORIDE [Suspect]
     Active Substance: OXYCODONE HYDROCHLORIDE
     Dosage: 5 MILLIGRAM, Q4H (IMMEDIATE RELEASE)
     Route: 065
     Dates: start: 2021
  5. OXYCODONE HYDROCHLORIDE [Suspect]
     Active Substance: OXYCODONE HYDROCHLORIDE
     Indication: Pain in extremity
     Dosage: 5 MILLIGRAM, Q4H
     Route: 065
  6. OXYCODONE HYDROCHLORIDE [Suspect]
     Active Substance: OXYCODONE HYDROCHLORIDE
     Indication: Analgesic therapy
  7. FENTANYL [Suspect]
     Active Substance: FENTANYL
     Indication: Pain
     Dosage: 100 MICROGRAM, Q2H
     Route: 060

REACTIONS (1)
  - Neurotoxicity [Recovered/Resolved]
